FAERS Safety Report 5786480-8 (Version None)
Quarter: 2008Q2

REPORT INFORMATION
  Report Type: 
  Country: None (occurrence: None)
  Receive Date: 20080624
  Receipt Date: 20080619
  Transmission Date: 20081010
  Serious: Yes (Other)
  Sender: FDA-Public Use
  Company Number: US-PFIZER INC-2008037307

PATIENT
  Sex: Female
  Weight: 53 kg

DRUGS (2)
  1. ZOLOFT [Suspect]
     Indication: DEPRESSION
     Dosage: DAILY DOSE:50MG
     Route: 048
  2. CONTRACEPTIVE, UNSPECIFIED [Concomitant]

REACTIONS (18)
  - AUTOIMMUNE DISORDER [None]
  - DISTURBANCE IN ATTENTION [None]
  - EAR DISCOMFORT [None]
  - HEADACHE [None]
  - HEARING IMPAIRED [None]
  - MENTAL DISORDER [None]
  - MIGRAINE [None]
  - MUSCULAR WEAKNESS [None]
  - MYDRIASIS [None]
  - NAUSEA [None]
  - PAIN IN EXTREMITY [None]
  - PAIN IN JAW [None]
  - PAROSMIA [None]
  - PHOTOPHOBIA [None]
  - RETINITIS [None]
  - TINNITUS [None]
  - VIRAL INFECTION [None]
  - VISION BLURRED [None]
